FAERS Safety Report 17612699 (Version 5)
Quarter: 2020Q2

REPORT INFORMATION
  Report Type: Report from Study
  Country: US (occurrence: US)
  Receive Date: 20200401
  Receipt Date: 20200617
  Transmission Date: 20200713
  Serious: Yes (Hospitalization)
  Sender: FDA-Public Use
  Company Number: US-ACTELION-A-NJ2020-203784

PATIENT
  Age: 72 Year
  Sex: Male
  Weight: 90.7 kg

DRUGS (24)
  1. AMIODARONE [Concomitant]
     Active Substance: AMIODARONE
     Dosage: 200 MG
  2. IPRATROPIUM BROMIDE AND ALBUTEROL SULFATE [Concomitant]
     Active Substance: ALBUTEROL SULFATE\IPRATROPIUM BROMIDE
     Dosage: 0.5 MG
  3. VITAMIN B12 [COBAMAMIDE] [Concomitant]
     Dosage: UNK, Q2WEEK
  4. ZOLOFT [Concomitant]
     Active Substance: SERTRALINE HYDROCHLORIDE
  5. ALLOPURINOL. [Concomitant]
     Active Substance: ALLOPURINOL
  6. IPRATROPIUM BROMIDE AND ALBUTEROL SULFATE [Concomitant]
     Active Substance: ALBUTEROL SULFATE\IPRATROPIUM BROMIDE
     Dosage: 3 MG
  7. IRON [Concomitant]
     Active Substance: IRON
  8. SYMBICORT [Concomitant]
     Active Substance: BUDESONIDE\FORMOTEROL FUMARATE DIHYDRATE
  9. METOPROLOL. [Concomitant]
     Active Substance: METOPROLOL
  10. ADEMPAS [Concomitant]
     Active Substance: RIOCIGUAT
  11. ELIQUIS [Concomitant]
     Active Substance: APIXABAN
  12. LASIX P [Concomitant]
     Active Substance: FUROSEMIDE
     Dosage: 40 MG, QAM
  13. BUDESONIDE. [Concomitant]
     Active Substance: BUDESONIDE
  14. AMLODIPINE [Concomitant]
     Active Substance: AMLODIPINE BESYLATE
  15. BUSPAR [Concomitant]
     Active Substance: BUSPIRONE HYDROCHLORIDE
  16. B12 1000 SR [Concomitant]
  17. OPSUMIT [Suspect]
     Active Substance: MACITENTAN
     Indication: PULMONARY ARTERIAL HYPERTENSION
     Dosage: 10 MG, QD
     Route: 048
     Dates: start: 2019
  18. ATORVASTATIN [Concomitant]
     Active Substance: ATORVASTATIN
  19. LASIX P [Concomitant]
     Active Substance: FUROSEMIDE
     Dosage: 20 MG, QPM
  20. SPIRIVA [Concomitant]
     Active Substance: TIOTROPIUM BROMIDE MONOHYDRATE
  21. OXYBUTYNIN. [Concomitant]
     Active Substance: OXYBUTYNIN CHLORIDE
  22. PANTOPRAZOLE [Concomitant]
     Active Substance: PANTOPRAZOLE
  23. ALBUTEROL [SALBUTAMOL] [Concomitant]
     Active Substance: ALBUTEROL
  24. TRAZODONE [Concomitant]
     Active Substance: TRAZODONE HYDROCHLORIDE

REACTIONS (14)
  - Dyspnoea [Unknown]
  - Oxygen saturation decreased [Not Recovered/Not Resolved]
  - Pulmonary oedema [Unknown]
  - Arrhythmia [Unknown]
  - Haemoglobin decreased [Unknown]
  - Transfusion [Unknown]
  - Chest pain [Unknown]
  - Anaemia [Unknown]
  - Renal failure [Unknown]
  - Pulmonary arterial hypertension [Unknown]
  - Suffocation feeling [Unknown]
  - Heart rate decreased [Unknown]
  - Lung disorder [Unknown]
  - Aspiration pleural cavity [Unknown]

NARRATIVE: CASE EVENT DATE: 2020
